FAERS Safety Report 14762925 (Version 1)
Quarter: 2018Q2

REPORT INFORMATION
  Report Type: Spontaneous
  Country: US (occurrence: US)
  Receive Date: 20180409
  Receipt Date: 20180409
  Transmission Date: 20180711
  Serious: Yes (Hospitalization)
  Sender: FDA-Public Use
  Company Number: None

PATIENT
  Age: 76 Year
  Sex: Female
  Weight: 50 kg

DRUGS (3)
  1. SELINEXOR 20MG [Suspect]
     Active Substance: SELINEXOR
     Indication: PLASMA CELL MYELOMA
     Dosage: ?          OTHER FREQUENCY:1, 3,8, 10, 15, 17;22,24?
     Route: 048
     Dates: start: 20180404, end: 20180406
  2. VELCADE [Suspect]
     Active Substance: BORTEZOMIB
     Dosage: ?          OTHER FREQUENCY:1,8,15,22;?
     Route: 058
  3. SELINEXOR: 40MG [Suspect]
     Active Substance: SELINEXOR
     Dosage: ?          OTHER FREQUENCY:3,10,17,24;?
     Route: 048

REACTIONS (3)
  - Tumour lysis syndrome [None]
  - Blood creatinine increased [None]
  - Blood sodium decreased [None]

NARRATIVE: CASE EVENT DATE: 20180406
